FAERS Safety Report 7385353 (Version 3)
Quarter: 2013Q1

REPORT INFORMATION
  Report Type: Spontaneous
  Country: US (occurrence: US)
  Receive Date: 20100512
  Receipt Date: 20130108
  Transmission Date: 20140127
  Serious: Yes (Hospitalization, Other)
  Sender: FDA-Public Use
  Company Number: US-ELI_LILLY_AND_COMPANY-US201005000601

PATIENT
  Age: 47 Year
  Sex: Female
  Weight: 77.55 kg

DRUGS (7)
  1. BYETTA [Suspect]
     Dosage: UNK, UNK
     Route: 058
     Dates: end: 200906
  2. NOVOLOG [Concomitant]
  3. METFORMIN [Concomitant]
  4. LEVEMIR [Concomitant]
  5. DICLOFENAC [Concomitant]
  6. PAXIL [Concomitant]
  7. HYDROCODONE [Concomitant]

REACTIONS (2)
  - Pancreatitis acute [Not Recovered/Not Resolved]
  - Off label use [Unknown]
